FAERS Safety Report 10570069 (Version 1)
Quarter: 2014Q4

REPORT INFORMATION
  Report Type: Spontaneous
  Country: US (occurrence: None)
  Receive Date: 20141105
  Receipt Date: 20141105
  Transmission Date: 20150529
  Serious: Yes (Hospitalization)
  Sender: FDA-Public Use
  Company Number: 2014UCU075000308

PATIENT
  Age: 38 Year
  Sex: Female
  Weight: 63 kg

DRUGS (24)
  1. GABAPENTIN. [Concomitant]
     Active Substance: GABAPENTIN
  2. AZATHIOPRINE. [Concomitant]
     Active Substance: AZATHIOPRINE
  3. SUCRALFATE. [Concomitant]
     Active Substance: SUCRALFATE
  4. ALBUTEROL. [Concomitant]
     Active Substance: ALBUTEROL
  5. BACTRIM [Concomitant]
     Active Substance: SULFAMETHOXAZOLE\TRIMETHOPRIM
  6. CIMZIA [Suspect]
     Active Substance: CERTOLIZUMAB PEGOL
     Indication: CROHN^S DISEASE
     Dates: start: 20090819
  7. REMICADE [Suspect]
     Active Substance: INFLIXIMAB
     Indication: CROHN^S DISEASE
     Dates: start: 20130920, end: 201401
  8. PREDNISONE. [Suspect]
     Active Substance: PREDNISONE
     Indication: CROHN^S DISEASE
     Dates: start: 20120614
  9. METHOTREXATE [Concomitant]
     Active Substance: METHOTREXATE
  10. PROGRAF [Concomitant]
     Active Substance: TACROLIMUS\TACROLIMUS ANHYDROUS
  11. NITROFURANTOIN MONOHYDRATE [Concomitant]
     Active Substance: NITROFURANTOIN MONOHYDRATE
  12. RANITIDINE [Concomitant]
     Active Substance: RANITIDINE\RANITIDINE HYDROCHLORIDE
  13. CYCLOSPORINE. [Concomitant]
     Active Substance: CYCLOSPORINE
  14. ADALIMUMAB [Concomitant]
     Active Substance: ADALIMUMAB
  15. CYMBALTA [Concomitant]
     Active Substance: DULOXETINE HYDROCHLORIDE
  16. METRONIDAZOLE. [Concomitant]
     Active Substance: METRONIDAZOLE
  17. OMEPRAZOLE. [Concomitant]
     Active Substance: OMEPRAZOLE
  18. SULFASALAZINE. [Concomitant]
     Active Substance: SULFASALAZINE
  19. CIPROFLOXACIN. [Concomitant]
     Active Substance: CIPROFLOXACIN
  20. 6-MP [Concomitant]
     Active Substance: MERCAPTOPURINE
  21. LIDOCAINE. [Concomitant]
     Active Substance: LIDOCAINE
  22. MESALAMINE. [Concomitant]
     Active Substance: MESALAMINE
  23. BUDESONIDE. [Concomitant]
     Active Substance: BUDESONIDE
  24. RELISTOR [Concomitant]
     Active Substance: METHYLNALTREXONE BROMIDE

REACTIONS (6)
  - Diarrhoea [None]
  - Hypersensitivity [None]
  - Oesophageal candidiasis [None]
  - Constipation [None]
  - Abdominal pain [None]
  - Urinary tract infection [None]

NARRATIVE: CASE EVENT DATE: 20140627
